FAERS Safety Report 14805609 (Version 19)
Quarter: 2019Q3

REPORT INFORMATION
  Report Type: Spontaneous
  Country: US (occurrence: US)
  Receive Date: 20180425
  Receipt Date: 20190927
  Transmission Date: 20191004
  Serious: Yes (Hospitalization)
  Sender: FDA-Public Use
  Company Number: US-PFIZER INC-2018168305

PATIENT
  Age: 70 Year
  Sex: Male
  Weight: 91 kg

DRUGS (24)
  1. METOPROLOL. [Concomitant]
     Active Substance: METOPROLOL
     Dosage: UNK
     Dates: start: 2015
  2. NORCO [Concomitant]
     Active Substance: ACETAMINOPHEN\HYDROCODONE BITARTRATE
     Dosage: UNK, AS NEEDED
     Dates: start: 2015
  3. NORCO [Concomitant]
     Active Substance: ACETAMINOPHEN\HYDROCODONE BITARTRATE
     Dosage: UNK
     Dates: start: 2017
  4. SOMNAPURE [Concomitant]
     Dosage: UNK
     Dates: start: 2015
  5. TRAZODONE [Concomitant]
     Active Substance: TRAZODONE HYDROCHLORIDE
     Dosage: UNK
     Dates: start: 2015
  6. TRAZODONE [Concomitant]
     Active Substance: TRAZODONE HYDROCHLORIDE
     Dosage: UNK
     Dates: start: 2016
  7. SUTENT [Suspect]
     Active Substance: SUNITINIB MALATE
     Dosage: 37.5 MG, 1X/DAY
     Route: 048
     Dates: start: 20180505, end: 2018
  8. FLAX SEED [Concomitant]
     Active Substance: FLAX SEED
     Dosage: UNK
     Dates: start: 2010
  9. METFORMIN [Concomitant]
     Active Substance: METFORMIN HYDROCHLORIDE
     Dosage: UNK
     Dates: start: 2015
  10. XGEVA [Concomitant]
     Active Substance: DENOSUMAB
     Indication: BONE DISORDER
     Dosage: UNK
     Dates: start: 2015
  11. SUTENT [Suspect]
     Active Substance: SUNITINIB MALATE
     Dosage: 37.5 MG, CYCLIC (2 WEEKS ON / 1 WEEK OFF; 2 OF 3 WEEKS)
     Route: 048
     Dates: start: 2018
  12. BORAGE OIL [Concomitant]
     Active Substance: BORAGE OIL
     Dosage: UNK
     Dates: start: 2010
  13. XGEVA [Concomitant]
     Active Substance: DENOSUMAB
     Indication: BONE CANCER
     Dosage: UNK
     Dates: start: 201611
  14. FISH OIL [Concomitant]
     Active Substance: FISH OIL
     Dosage: UNK
     Dates: start: 2010
  15. LISINOPRIL. [Concomitant]
     Active Substance: LISINOPRIL
     Dosage: UNK
     Dates: start: 2000
  16. LANREOTIDE [Concomitant]
     Active Substance: LANREOTIDE
     Indication: NEUROENDOCRINE TUMOUR
     Dosage: UNK
     Dates: start: 2014
  17. TRAMADOL. [Concomitant]
     Active Substance: TRAMADOL
     Dosage: UNK
     Dates: start: 2015
  18. SUTENT [Suspect]
     Active Substance: SUNITINIB MALATE
     Indication: PANCREATIC NEUROENDOCRINE TUMOUR METASTATIC
     Dosage: 37.5 MG, CYCLIC (2 WEEKS ON / 1 WEEK OFF)
     Route: 048
     Dates: start: 201712
  19. BENADRYL [Concomitant]
     Active Substance: DIPHENHYDRAMINE HYDROCHLORIDE
     Dosage: UNK, 1X/DAY (AT NIGHT, HS)
     Dates: start: 2016
  20. LANREOTIDE [Concomitant]
     Active Substance: LANREOTIDE
     Indication: DIARRHOEA
     Dosage: UNK
     Dates: start: 201011
  21. TRESIBA [Concomitant]
     Active Substance: INSULIN DEGLUDEC
     Dosage: UNK
     Dates: start: 2015
  22. XARELTO [Concomitant]
     Active Substance: RIVAROXABAN
     Dosage: UNK
     Dates: start: 2017
  23. LANREOTIDE [Concomitant]
     Active Substance: LANREOTIDE
     Dosage: UNK
     Dates: start: 201611
  24. PRAVASTATIN. [Concomitant]
     Active Substance: PRAVASTATIN
     Dosage: UNK
     Dates: start: 2000

REACTIONS (20)
  - Blood creatinine increased [Recovered/Resolved]
  - Back pain [Not Recovered/Not Resolved]
  - Neoplasm progression [Not Recovered/Not Resolved]
  - Hair colour changes [Not Recovered/Not Resolved]
  - Pain [Not Recovered/Not Resolved]
  - Stomatitis [Recovered/Resolved]
  - Weight increased [Unknown]
  - Diarrhoea [Not Recovered/Not Resolved]
  - Dizziness [Unknown]
  - Hypertension [Not Recovered/Not Resolved]
  - Taste disorder [Not Recovered/Not Resolved]
  - Arthritis [Not Recovered/Not Resolved]
  - Epistaxis [Not Recovered/Not Resolved]
  - Fatigue [Not Recovered/Not Resolved]
  - Arthralgia [Not Recovered/Not Resolved]
  - Pain of skin [Recovered/Resolved]
  - Thirst [Unknown]
  - Weight decreased [Recovered/Resolved]
  - Dry mouth [Not Recovered/Not Resolved]
  - Lip dry [Not Recovered/Not Resolved]

NARRATIVE: CASE EVENT DATE: 2018
